FAERS Safety Report 13382210 (Version 2)
Quarter: 2017Q2

REPORT INFORMATION
  Report Type: Spontaneous
  Country: GR (occurrence: GR)
  Receive Date: 20170329
  Receipt Date: 20170509
  Transmission Date: 20170830
  Serious: Yes (Other)
  Sender: FDA-Public Use
  Company Number: PHHY2017GR044828

PATIENT
  Age: 75 Year
  Sex: Female

DRUGS (1)
  1. DESFERAL [Suspect]
     Active Substance: DEFEROXAMINE MESYLATE
     Indication: IRON OVERLOAD
     Route: 065

REACTIONS (5)
  - Drug ineffective [Unknown]
  - Macular degeneration [Unknown]
  - Tinnitus [Unknown]
  - Blindness [Unknown]
  - Eye disorder [Unknown]
